FAERS Safety Report 20333684 (Version 3)
Quarter: 2022Q1

REPORT INFORMATION
  Report Type: Report from Study
  Country: KR (occurrence: KR)
  Receive Date: 20220113
  Receipt Date: 20220331
  Transmission Date: 20220423
  Serious: Yes (Other)
  Sender: FDA-Public Use
  Company Number: KR-JNJFOC-20211129097

PATIENT
  Age: 63 Year
  Sex: Female
  Weight: 50 kg

DRUGS (2)
  1. AMIVANTAMAB [Suspect]
     Active Substance: AMIVANTAMAB
     Indication: Non-small cell lung cancer
     Route: 042
     Dates: start: 20210809, end: 20210924
  2. AMIVANTAMAB [Suspect]
     Active Substance: AMIVANTAMAB
     Dosage: MOST RECENT DOSE 20/OCT/2021
     Route: 042
     Dates: start: 20211020, end: 20211020

REACTIONS (1)
  - Injury corneal [Recovered/Resolved with Sequelae]

NARRATIVE: CASE EVENT DATE: 20211111
